FAERS Safety Report 24104488 (Version 2)
Quarter: 2024Q4

REPORT INFORMATION
  Report Type: Spontaneous
  Country: CN (occurrence: CN)
  Receive Date: 20240717
  Receipt Date: 20241011
  Transmission Date: 20250114
  Serious: No
  Sender: SANDOZ
  Company Number: CN-002147023-NVSC2024CN145299

PATIENT
  Age: 35 Year
  Sex: Male

DRUGS (2)
  1. TOBRADEX [Suspect]
     Active Substance: DEXAMETHASONE\TOBRAMYCIN
     Indication: Meibomianitis
     Dosage: 0.01 G, BID (EXTERNAL USE)
     Route: 065
     Dates: start: 20240706, end: 20240706
  2. TOBRADEX [Suspect]
     Active Substance: DEXAMETHASONE\TOBRAMYCIN
     Dosage: UNK (THE NUMBER OF USES WAS REDUCED)
     Route: 065

REACTIONS (5)
  - Eye irritation [Recovering/Resolving]
  - Ocular hyperaemia [Recovering/Resolving]
  - Eye swelling [Recovering/Resolving]
  - Eye pain [Recovering/Resolving]
  - Off label use [Recovered/Resolved]

NARRATIVE: CASE EVENT DATE: 20240706
